FAERS Safety Report 21853205 (Version 1)
Quarter: 2023Q1

REPORT INFORMATION
  Report Type: Spontaneous
  Country: None (occurrence: US)
  Receive Date: 20230112
  Receipt Date: 20230112
  Transmission Date: 20230417
  Serious: Yes (Hospitalization, Disabling)
  Sender: FDA-Public Use
  Company Number: US-Walmart Premier Brands of America-2136645

PATIENT
  Age: 68 Year
  Sex: Female
  Weight: 59.091 kg

DRUGS (3)
  1. TOLNAFTATE [Suspect]
     Active Substance: TOLNAFTATE
     Indication: Onychomycosis
     Route: 061
     Dates: start: 20220701, end: 20220702
  2. BACTRIM DS [Concomitant]
     Active Substance: SULFAMETHOXAZOLE\TRIMETHOPRIM
     Route: 048
     Dates: start: 20220822
  3. TRAMADOL [Concomitant]
     Active Substance: TRAMADOL
     Route: 048

REACTIONS (1)
  - Dry gangrene [Recovering/Resolving]

NARRATIVE: CASE EVENT DATE: 20220709
